FAERS Safety Report 8301249-8 (Version None)
Quarter: 2012Q2

REPORT INFORMATION
  Report Type: 
  Country: None (occurrence: None)
  Receive Date: 20120420
  Receipt Date: 20120420
  Transmission Date: 20120825
  Serious: Yes (Disabling)
  Sender: FDA-Public Use
  Company Number: None

PATIENT
  Age: 86 Year
  Sex: Female
  Weight: 69 kg

DRUGS (1)
  1. BENOXINATE/FLUORESCEIN (FLURESS) [Suspect]
     Indication: OPHTHALMOLOGICAL EXAMINATION
     Route: 047

REACTIONS (5)
  - VOMITING [None]
  - PRODUCT SUBSTITUTION ISSUE [None]
  - BLOOD GLUCOSE DECREASED [None]
  - INCOHERENT [None]
  - FATIGUE [None]
